FAERS Safety Report 5748544-4 (Version None)
Quarter: 2008Q2

REPORT INFORMATION
  Report Type: 
  Country: None (occurrence: None)
  Receive Date: 20080523
  Receipt Date: 20080513
  Transmission Date: 20081010
  Serious: Yes (Hospitalization)
  Sender: FDA-Public Use
  Company Number: FR-PFIZER INC-2008042060

PATIENT
  Sex: Female

DRUGS (11)
  1. NEURONTIN [Suspect]
     Indication: PAIN
     Route: 048
     Dates: start: 20080124, end: 20080222
  2. SEROPRAM [Suspect]
     Indication: DEPRESSION
     Route: 048
     Dates: start: 20080204, end: 20080222
  3. PYOSTACINE [Suspect]
     Indication: INFECTION
     Route: 048
     Dates: start: 20080214, end: 20080222
  4. FUCIDINE CAP [Concomitant]
     Route: 048
  5. ENOXAPARIN SODIUM [Concomitant]
  6. CLONAZEPAM [Concomitant]
  7. PANTOPRAZOLE SODIUM [Concomitant]
  8. NEBIVOLOL HCL [Concomitant]
  9. TRAMADOL HCL [Concomitant]
  10. KETOPROFEN [Concomitant]
  11. VANCOMYCIN [Concomitant]

REACTIONS (5)
  - DRUG RASH WITH EOSINOPHILIA AND SYSTEMIC SYMPTOMS [None]
  - PYREXIA [None]
  - RASH MACULO-PAPULAR [None]
  - RENAL FAILURE [None]
  - TRANSAMINASES INCREASED [None]
